FAERS Safety Report 17575280 (Version 1)
Quarter: 2020Q1

REPORT INFORMATION
  Report Type: Spontaneous
  Country: US (occurrence: US)
  Receive Date: 20200318
  Receipt Date: 20200318
  Transmission Date: 20200409
  Serious: Yes (Death)
  Sender: FDA-Public Use
  Company Number: None

PATIENT
  Age: 60 Year
  Sex: Female

DRUGS (2)
  1. SANCUSO [Suspect]
     Active Substance: GRANISETRON
     Dosage: ?          OTHER DOSE:1 PATCH;OTHER FREQUENCY:EVERY 7 DAYS;OTHER ROUTE:ON ARM?
     Dates: start: 20200203
  2. ZOLEDRONIC ACID SDV 4MG/5ML [Suspect]
     Active Substance: ZOLEDRONIC ACID
     Indication: BREAST CANCER
     Dosage: ?          OTHER FREQUENCY:EVERY 21 DAYS;?
     Route: 042
     Dates: start: 20190425

REACTIONS (1)
  - Unevaluable event [None]

NARRATIVE: CASE EVENT DATE: 20200312
